FAERS Safety Report 9267589 (Version 2)
Quarter: 2013Q2

REPORT INFORMATION
  Report Type: Report from Study
  Country: US (occurrence: US)
  Receive Date: 20130502
  Receipt Date: 20130516
  Transmission Date: 20140414
  Serious: Yes (Other)
  Sender: FDA-Public Use
  Company Number: US-ABBOTT-13P-163-1080819-00

PATIENT
  Age: 39 Year
  Sex: Female

DRUGS (3)
  1. RITONAVIR [Suspect]
     Indication: HIV INFECTION
     Route: 048
     Dates: start: 20100308
  2. PREZISTA [Concomitant]
     Indication: HIV INFECTION
     Route: 048
     Dates: start: 20100308
  3. TRUVADA [Concomitant]
     Indication: HIV INFECTION
     Route: 048
     Dates: start: 20100308

REACTIONS (1)
  - Abortion induced [Unknown]
